FAERS Safety Report 9539221 (Version 1)
Quarter: 2013Q2

REPORT INFORMATION
  Report Type: Spontaneous
  Country: US (occurrence: None)
  Receive Date: 20130507
  Receipt Date: 20130507
  Transmission Date: 20140414
  Serious: No
  Sender: FDA-Public Use
  Company Number: PHEH2013US003439

PATIENT
  Age: 60 Year
  Sex: Female

DRUGS (2)
  1. AFINITOR (RAD) TABLET, 10MG [Suspect]
     Indication: BREAST CANCER METASTATIC
     Dosage: AFINITOR REGIMEN #2  5 MG, UNK, ORAL
     Route: 048
     Dates: start: 20120905
  2. EXEMESTANE (EXEMESTANE) [Concomitant]

REACTIONS (1)
  - Epistaxis [None]
